FAERS Safety Report 6822760-2 (Version None)
Quarter: 2010Q3

REPORT INFORMATION
  Report Type: 
  Country: None (occurrence: None)
  Receive Date: 20100708
  Receipt Date: 20100701
  Transmission Date: 20110219
  Serious: Yes (Death, Other)
  Sender: FDA-Public Use
  Company Number: DE-ROCHE-707679

PATIENT
  Sex: Female
  Weight: 50 kg

DRUGS (6)
  1. AVASTIN [Suspect]
     Dosage: GIVEN ONCE
     Route: 042
     Dates: start: 20100419, end: 20100428
  2. TAXOL [Concomitant]
     Route: 042
     Dates: start: 20100419, end: 20100428
  3. LYRICA [Concomitant]
     Indication: METASTASES TO MUSCLE
     Route: 048
  4. TARGIN [Concomitant]
     Route: 048
  5. ACTRAPHANE [Concomitant]
     Indication: DIABETES MELLITUS
     Route: 058
  6. ACTRAPID [Concomitant]
     Indication: DIABETES MELLITUS
     Route: 058

REACTIONS (4)
  - MALIGNANT NEOPLASM PROGRESSION [None]
  - OEDEMA PERIPHERAL [None]
  - PROTEINURIA [None]
  - ULCER [None]
